FAERS Safety Report 25661272 (Version 2)
Quarter: 2025Q3

REPORT INFORMATION
  Report Type: Spontaneous
  Country: US (occurrence: US)
  Receive Date: 20250808
  Receipt Date: 20250930
  Transmission Date: 20251020
  Serious: No
  Sender: DR REDDYS
  Company Number: US-DRL-USA-USA/2025/07/010192

PATIENT
  Age: 36 Year
  Sex: Female
  Weight: 95.25 kg

DRUGS (1)
  1. SUMATRIPTAN SUCCINATE [Suspect]
     Active Substance: SUMATRIPTAN SUCCINATE
     Indication: Migraine
     Route: 065
     Dates: start: 202507

REACTIONS (2)
  - Incorrect dosage administered [Unknown]
  - Device failure [Unknown]

NARRATIVE: CASE EVENT DATE: 20250701
